FAERS Safety Report 19755895 (Version 1)
Quarter: 2021Q3

REPORT INFORMATION
  Report Type: Spontaneous
  Country: US (occurrence: US)
  Receive Date: 20210827
  Receipt Date: 20210827
  Transmission Date: 20211014
  Serious: No
  Sender: FDA-Public Use
  Company Number: US-PFIZER INC-202101069902

PATIENT
  Age: 62 Year
  Sex: Female
  Weight: 79.38 kg

DRUGS (7)
  1. EFFEXOR XR [Interacting]
     Active Substance: VENLAFAXINE HYDROCHLORIDE
     Indication: MIGRAINE PROPHYLAXIS
  2. BENADRYL [Concomitant]
     Active Substance: DIPHENHYDRAMINE HYDROCHLORIDE
     Indication: ASTHMA
     Dosage: UNK UNK, DAILY
  3. EFFEXOR XR [Suspect]
     Active Substance: VENLAFAXINE HYDROCHLORIDE
     Indication: MIGRAINE
     Dosage: 75 MG
  4. PROTRIPTYLINE [Interacting]
     Active Substance: PROTRIPTYLINE
     Indication: MIGRAINE PROPHYLAXIS
  5. FLONASE [Concomitant]
     Active Substance: FLUTICASONE PROPIONATE
     Indication: ASTHMA
     Dosage: UNK UNK, DAILY
  6. XARELTO [Interacting]
     Active Substance: RIVAROXABAN
     Indication: THROMBOSIS
     Dosage: 20 MG, 1X/DAY
     Dates: start: 202108
  7. PROTRIPTYLINE [Interacting]
     Active Substance: PROTRIPTYLINE
     Indication: MIGRAINE
     Dosage: UNK

REACTIONS (4)
  - Epistaxis [Unknown]
  - Contusion [Unknown]
  - Drug interaction [Unknown]
  - Off label use [Unknown]
